FAERS Safety Report 5068514-1 (Version None)
Quarter: 2006Q3

REPORT INFORMATION
  Report Type: 
  Country: None (occurrence: None)
  Receive Date: 20060802
  Receipt Date: 20051025
  Transmission Date: 20061208
  Serious: No
  Sender: FDA-Public Use
  Company Number: US-BRISTOL-MYERS SQUIBB COMPANY-13165253

PATIENT

DRUGS (4)
  1. COUMADIN [Suspect]
  2. COUMADIN [Suspect]
  3. CARDURA [Suspect]
     Indication: HYPERTENSION
  4. AVANDIA [Suspect]
     Indication: DIABETES MELLITUS

REACTIONS (1)
  - DRUG DISPENSING ERROR [None]
